FAERS Safety Report 6613774-6 (Version None)
Quarter: 2010Q1

REPORT INFORMATION
  Report Type: 
  Country: None (occurrence: None)
  Receive Date: 20100226
  Receipt Date: 20100216
  Transmission Date: 20100710
  Serious: Yes (Other)
  Sender: FDA-Public Use
  Company Number: US-1180913

PATIENT
  Sex: Male

DRUGS (2)
  1. PATANASE [Suspect]
     Indication: RHINITIS
     Dosage: 0.6% BID, 2 SPRAYS IN EACH NOSTRIL BID NASAL
     Route: 045
  2. WARFARIN SODIUM [Concomitant]

REACTIONS (3)
  - DRUG INEFFECTIVE [None]
  - INTERNATIONAL NORMALISED RATIO INCREASED [None]
  - PROTHROMBIN TIME PROLONGED [None]
